FAERS Safety Report 5679089-8 (Version None)
Quarter: 2008Q1

REPORT INFORMATION
  Report Type: 
  Country: None (occurrence: None)
  Receive Date: 20080325
  Receipt Date: 20080124
  Transmission Date: 20080703
  Serious: Yes (Hospitalization)
  Sender: FDA-Public Use
  Company Number: US-JNJFOC-20080200699

PATIENT
  Sex: Male
  Weight: 95.26 kg

DRUGS (3)
  1. TRAMADOL HCL [Suspect]
     Indication: OSTEOARTHRITIS
     Route: 048
  2. MELOXICAM [Suspect]
     Indication: OSTEOARTHRITIS
  3. PLAVIX [Concomitant]
     Route: 065

REACTIONS (1)
  - OCCULT BLOOD POSITIVE [None]
